FAERS Safety Report 10155321 (Version 3)
Quarter: 2015Q4

REPORT INFORMATION
  Report Type: Spontaneous
  Country: MY (occurrence: MY)
  Receive Date: 20140506
  Receipt Date: 20151008
  Transmission Date: 20160304
  Serious: Yes (Death, Other)
  Sender: FDA-Public Use
  Company Number: PHHY2014MY053701

PATIENT
  Age: 35 Year
  Sex: Female

DRUGS (5)
  1. DEXAMETHASONE. [Suspect]
     Active Substance: DEXAMETHASONE
     Indication: ACUTE KIDNEY INJURY
     Dosage: 10 MG, QD
     Route: 042
  2. DEXAMETHASONE. [Suspect]
     Active Substance: DEXAMETHASONE
     Indication: HISTIOCYTOSIS HAEMATOPHAGIC
     Dosage: 16 MG, QD
     Route: 042
  3. CICLOSPORIN [Suspect]
     Active Substance: CYCLOSPORINE
     Dosage: 75 MG, BID
     Route: 048
  4. IMMUNGLOBULIN [Concomitant]
     Active Substance: HUMAN IMMUNOGLOBULIN G
     Indication: THROMBOTIC THROMBOCYTOPENIC PURPURA
     Dosage: 10 G, BID FOR 3 DAYS
     Route: 042
  5. CICLOSPORIN [Suspect]
     Active Substance: CYCLOSPORINE
     Indication: HISTIOCYTOSIS HAEMATOPHAGIC
     Dosage: 75 MG, BID
     Route: 042

REACTIONS (12)
  - Pneumonia cytomegaloviral [Unknown]
  - Lymphopenia [Unknown]
  - Cytomegalovirus colitis [Unknown]
  - Cystitis haemorrhagic [Unknown]
  - Multi-organ failure [Fatal]
  - Septic shock [Fatal]
  - Product use issue [Unknown]
  - Nosocomial infection [Fatal]
  - Maternal exposure during pregnancy [Unknown]
  - Normal newborn [Unknown]
  - Cytomegalovirus infection [Unknown]
  - Drug ineffective [Unknown]
